FAERS Safety Report 4785369-0 (Version None)
Quarter: 2005Q3

REPORT INFORMATION
  Report Type: 
  Country: None (occurrence: None)
  Receive Date: 20050929
  Receipt Date: 20050916
  Transmission Date: 20060218
  Serious: Yes (Other)
  Sender: FDA-Public Use
  Company Number: 2005105331

PATIENT
  Age: 81 Year
  Sex: Female

DRUGS (1)
  1. XALATAN [Suspect]
     Indication: GLAUCOMA
     Dosage: (1 IN 1 D), OPHTHALMIC/SEVERAL YEARS
     Route: 047

REACTIONS (10)
  - AURICULAR SWELLING [None]
  - BLINDNESS TRANSIENT [None]
  - BLINDNESS UNILATERAL [None]
  - EYE SWELLING [None]
  - HEADACHE [None]
  - INTRAOCULAR PRESSURE INCREASED [None]
  - OCULAR HYPERAEMIA [None]
  - SHOULDER OPERATION [None]
  - SWELLING FACE [None]
  - SWOLLEN TONGUE [None]
